FAERS Safety Report 21280190 (Version 1)
Quarter: 2022Q3

REPORT INFORMATION
  Report Type: Spontaneous
  Country: US (occurrence: US)
  Receive Date: 20220901
  Receipt Date: 20220901
  Transmission Date: 20221027
  Serious: No
  Sender: FDA-Public Use
  Company Number: US-Blueprint Medicines Corporation-382

PATIENT
  Sex: Male

DRUGS (1)
  1. AYVAKIT [Suspect]
     Active Substance: AVAPRITINIB
     Indication: Malignant mast cell neoplasm
     Route: 065
     Dates: start: 20211101

REACTIONS (5)
  - Tooth disorder [Unknown]
  - Product dose omission issue [Unknown]
  - Peripheral swelling [Unknown]
  - Swelling [Unknown]
  - Off label use [Unknown]
